FAERS Safety Report 4872914-X (Version None)
Quarter: 2006Q1

REPORT INFORMATION
  Report Type: 
  Country: None (occurrence: None)
  Receive Date: 20060105
  Receipt Date: 20050119
  Transmission Date: 20060701
  Serious: No
  Sender: FDA-Public Use
  Company Number: US-BRISTOL-MYERS SQUIBB COMPANY-12833653

PATIENT
  Age: 44 Year
  Sex: Male
  Weight: 54 kg

DRUGS (3)
  1. SERZONE [Suspect]
     Indication: DEPRESSION
     Dates: start: 19960101, end: 19990501
  2. HYDROXYZINE [Concomitant]
  3. AMOXICILLIN [Concomitant]

REACTIONS (1)
  - HEPATITIS C [None]
